FAERS Safety Report 14172703 (Version 3)
Quarter: 2018Q1

REPORT INFORMATION
  Report Type: Spontaneous
  Country: US (occurrence: US)
  Receive Date: 20171109
  Receipt Date: 20180207
  Transmission Date: 20180508
  Serious: Yes (Other)
  Sender: FDA-Public Use
  Company Number: US-ASTRAZENECA-2017SF13440

PATIENT
  Age: 71 Year
  Sex: Female
  Weight: 90.7 kg

DRUGS (1)
  1. NEXIUM 24HR CLEARMINIS [Suspect]
     Active Substance: ESOMEPRAZOLE MAGNESIUM
     Indication: BARRETT^S OESOPHAGUS
     Dosage: 40 MG, 1X/DAY (20MG CAPSULES, 2 CAPSULES ONCE A DAY)
     Route: 048

REACTIONS (6)
  - Postoperative thrombosis [Unknown]
  - Product quality issue [Unknown]
  - Intentional product misuse [Unknown]
  - Poor quality drug administered [Unknown]
  - Incorrect drug administration duration [Not Recovered/Not Resolved]
  - Intentional product use issue [Unknown]

NARRATIVE: CASE EVENT DATE: 2017
